FAERS Safety Report 11783221 (Version 3)
Quarter: 2016Q3

REPORT INFORMATION
  Report Type: Report from Study
  Country: IL (occurrence: IL)
  Receive Date: 20151127
  Receipt Date: 20160816
  Transmission Date: 20161109
  Serious: Yes (Hospitalization, Other)
  Sender: FDA-Public Use
  Company Number: PHHY2012IL029184

PATIENT
  Age: 54 Year
  Sex: Male
  Weight: 76 kg

DRUGS (5)
  1. SANDOSTATIN LAR DEPOT [Suspect]
     Active Substance: OCTREOTIDE ACETATE
     Indication: NEUROENDOCRINE TUMOUR
     Dosage: 30 MG EVERY 10 DAYS
     Route: 030
     Dates: start: 20100408
  2. SANDOSTATIN LAR DEPOT [Suspect]
     Active Substance: OCTREOTIDE ACETATE
     Dosage: 30 MG EVERY 10 DAYS
     Route: 030
     Dates: start: 20120402
  3. SANDOSTATIN LAR DEPOT [Suspect]
     Active Substance: OCTREOTIDE ACETATE
     Dosage: 30 MG, QW
     Route: 030
     Dates: start: 20141014
  4. SANDOSTATIN LAR DEPOT [Suspect]
     Active Substance: OCTREOTIDE ACETATE
     Dosage: 30 MG, QW
     Route: 030
  5. SANDOSTATIN LAR DEPOT [Suspect]
     Active Substance: OCTREOTIDE ACETATE
     Dosage: 30 MG, EVERY 10 DAYS
     Route: 030
     Dates: start: 20130317

REACTIONS (13)
  - Weight decreased [Not Recovered/Not Resolved]
  - Injection site pain [Unknown]
  - Back pain [Unknown]
  - Frequent bowel movements [Recovering/Resolving]
  - Inappropriate schedule of drug administration [Unknown]
  - Metastases to liver [Not Recovered/Not Resolved]
  - Injection site mass [Unknown]
  - Abdominal pain [Recovered/Resolved]
  - Abdominal pain [Unknown]
  - Flatulence [Unknown]
  - Malignant neoplasm progression [Not Recovered/Not Resolved]
  - Flushing [Not Recovered/Not Resolved]
  - Faecal volume increased [Recovering/Resolving]

NARRATIVE: CASE EVENT DATE: 20100408
